FAERS Safety Report 5767257-6 (Version None)
Quarter: 2008Q2

REPORT INFORMATION
  Report Type: 
  Country: None (occurrence: None)
  Receive Date: 20080611
  Receipt Date: 20080611
  Transmission Date: 20081010
  Serious: Yes (Death)
  Sender: FDA-Public Use
  Company Number: None

PATIENT
  Sex: Female
  Weight: 81.81 kg

DRUGS (27)
  1. LOVENOX [Suspect]
     Indication: ATRIAL FIBRILLATION
     Dosage: 80 MG BID SQ
     Route: 058
     Dates: start: 20080204, end: 20080208
  2. COUMADIN [Suspect]
     Indication: ATRIAL FIBRILLATION
     Dosage: 5 MG Q DAY PO
     Route: 048
     Dates: start: 20080205, end: 20080208
  3. MORPHINE [Concomitant]
  4. MORPHINE SULFATE [Concomitant]
  5. LEVSIN/SL [Concomitant]
  6. HYOSCYAMINE SULFATE [Concomitant]
  7. XOPENEX [Concomitant]
  8. LEVALBUTEROL HCL [Concomitant]
  9. K-DUR [Concomitant]
  10. POTASSIUM CHLORIDE [Concomitant]
  11. LANOXIN [Concomitant]
  12. DIGOXIN [Concomitant]
  13. CARDIZEM CD [Concomitant]
  14. DILTIAZEM CD [Concomitant]
  15. COUMADIN [Concomitant]
  16. WARFARIN SODIUM [Concomitant]
  17. SODIUM CHLORIDE [Concomitant]
  18. BIAXIN XL [Concomitant]
  19. CLARITHROMYCIN [Concomitant]
  20. TUSSIONEX SUSP HYDROCODONE-CHLORPHENIRAMINE [Concomitant]
  21. PNU-IMUNE 23 PNEUMOCOCCAL VACC 23-VALENT [Concomitant]
  22. SYRD [Concomitant]
  23. DARVOCET-N 100 [Concomitant]
  24. PROPOXYPHENE NAPSYLATE W/ ACETAMINOPHEN [Concomitant]
  25. XANAX [Concomitant]
  26. ALPRAZOLAM [Concomitant]
  27. ZOFRAN -ONDANSETRON- ONDANSETRON HCL [Concomitant]

REACTIONS (20)
  - ABDOMINAL DISTENSION [None]
  - ABDOMINAL PAIN [None]
  - ABDOMINAL WALL HAEMATOMA [None]
  - ACTIVATED PARTIAL THROMBOPLASTIN TIME PROLONGED [None]
  - BLOOD COUNT ABNORMAL [None]
  - COAGULOPATHY [None]
  - DEPRESSED LEVEL OF CONSCIOUSNESS [None]
  - FLATULENCE [None]
  - GENERAL PHYSICAL HEALTH DETERIORATION [None]
  - HAEMORRHAGE [None]
  - HEART RATE INCREASED [None]
  - HYPERHIDROSIS [None]
  - HYPOTENSION [None]
  - INTERNATIONAL NORMALISED RATIO INCREASED [None]
  - LETHARGY [None]
  - PROTHROMBIN TIME PROLONGED [None]
  - PYREXIA [None]
  - RESPIRATORY RATE INCREASED [None]
  - TENDERNESS [None]
  - VENA CAVA INJURY [None]
